FAERS Safety Report 8808690 (Version 1)
Quarter: 2012Q4

REPORT INFORMATION
  Report Type: 
  Country: DE (occurrence: DE)
  Receive Date: 20120926
  Receipt Date: 20120926
  Transmission Date: 20130627
  Serious: Yes (Hospitalization, Other)
  Sender: FDA-Public Use
  Company Number: DE-JNJFOC-20120906719

PATIENT
  Age: 3 Day
  Sex: Female
  Weight: 3.65 kg

DRUGS (3)
  1. FENTANYL [Suspect]
     Indication: FOETAL EXPOSURE DURING PREGNANCY
     Route: 064
     Dates: start: 20110723, end: 20120416
  2. LEVOTHYROXINE [Suspect]
     Indication: FOETAL EXPOSURE DURING PREGNANCY
     Route: 064
     Dates: start: 20110723, end: 20120416
  3. FOLSAEURE [Suspect]
     Indication: FOETAL EXPOSURE DURING PREGNANCY
     Route: 064
     Dates: start: 20110723, end: 20120416

REACTIONS (2)
  - Convulsion [Unknown]
  - Nervous system disorder [Unknown]
